FAERS Safety Report 8004666-9 (Version None)
Quarter: 2011Q4

REPORT INFORMATION
  Report Type: 
  Country: None (occurrence: None)
  Receive Date: 20111223
  Receipt Date: 20111215
  Transmission Date: 20120403
  Serious: Yes (Hospitalization)
  Sender: FDA-Public Use
  Company Number: US-JNJFOC-20111207874

PATIENT
  Sex: Male
  Weight: 60.7 kg

DRUGS (2)
  1. VITAMIN B-12 [Concomitant]
     Route: 050
  2. REMICADE [Suspect]
     Indication: INFLAMMATORY BOWEL DISEASE
     Route: 042
     Dates: start: 20100108

REACTIONS (1)
  - ABDOMINAL PAIN UPPER [None]
